FAERS Safety Report 9178332 (Version 1)
Quarter: 2012Q4

REPORT INFORMATION
  Report Type: 
  Country: US (occurrence: US)
  Receive Date: 20121029
  Receipt Date: 20121029
  Transmission Date: 20130627
  Serious: No
  Sender: FDA-Public Use
  Company Number: US-009507513-1210USA011790

PATIENT
  Sex: Female

DRUGS (5)
  1. FOSAMAX [Suspect]
     Indication: OSTEOPENIA
     Dosage: 35 mg, qw
     Route: 048
  2. SIMVASTATIN [Concomitant]
  3. PROPECIA [Concomitant]
  4. CALCIUM (UNSPECIFIED) [Concomitant]
  5. VITAMIN D (UNSPECIFIED) [Concomitant]

REACTIONS (1)
  - Tooth disorder [Not Recovered/Not Resolved]
